FAERS Safety Report 10541426 (Version 1)
Quarter: 2014Q4

REPORT INFORMATION
  Report Type: Spontaneous
  Country: TW (occurrence: TW)
  Receive Date: 20141024
  Receipt Date: 20141024
  Transmission Date: 20150529
  Serious: Yes (Death)
  Sender: FDA-Public Use
  Company Number: TW-ABBVIE-14P-153-1297932-00

PATIENT
  Age: 54 Year
  Sex: Male

DRUGS (25)
  1. METHOTREXATE [Concomitant]
     Active Substance: METHOTREXATE
     Route: 065
  2. METHOTREXATE [Concomitant]
     Active Substance: METHOTREXATE
     Route: 065
  3. RITUXIMAB [Suspect]
     Active Substance: RITUXIMAB
     Dosage: BIWEEKLY, TWO DOSES PER COURSE (COURSE 3)
     Route: 065
     Dates: start: 201007
  4. AZATHIOPRINE. [Concomitant]
     Active Substance: AZATHIOPRINE
     Route: 065
  5. RITUXIMAB [Suspect]
     Active Substance: RITUXIMAB
     Indication: PRODUCT USED FOR UNKNOWN INDICATION
     Dosage: BIWEEKLY, TWO DOSES PER COURSE (COURSE 1)
     Route: 065
     Dates: start: 200901
  6. RITUXIMAB [Suspect]
     Active Substance: RITUXIMAB
     Dosage: BIWEEKLY, TWO DOSES PER COURSE (COURSE 2)
     Route: 065
     Dates: start: 201003
  7. SULFASALAZINE. [Concomitant]
     Active Substance: SULFASALAZINE
     Route: 065
  8. HYDROXYCHLOROQUINE [Concomitant]
     Active Substance: HYDROXYCHLOROQUINE
     Indication: PRODUCT USED FOR UNKNOWN INDICATION
     Route: 065
  9. SULFASALAZINE. [Concomitant]
     Active Substance: SULFASALAZINE
     Indication: PRODUCT USED FOR UNKNOWN INDICATION
     Route: 065
  10. SULFASALAZINE. [Concomitant]
     Active Substance: SULFASALAZINE
     Route: 065
  11. METHOTREXATE [Concomitant]
     Active Substance: METHOTREXATE
     Route: 065
  12. METHOTREXATE [Concomitant]
     Active Substance: METHOTREXATE
     Route: 065
  13. SULFASALAZINE. [Concomitant]
     Active Substance: SULFASALAZINE
     Route: 065
  14. METHYLPREDNISOLONE. [Concomitant]
     Active Substance: METHYLPREDNISOLONE
     Indication: PREMEDICATION
     Route: 042
  15. SULFASALAZINE. [Concomitant]
     Active Substance: SULFASALAZINE
     Route: 065
  16. SULFASALAZINE. [Concomitant]
     Active Substance: SULFASALAZINE
     Route: 065
  17. SULFASALAZINE. [Concomitant]
     Active Substance: SULFASALAZINE
     Route: 065
  18. LEFLUNOMIDE. [Concomitant]
     Active Substance: LEFLUNOMIDE
     Indication: PRODUCT USED FOR UNKNOWN INDICATION
     Route: 065
  19. ETANERCEPT [Concomitant]
     Active Substance: ETANERCEPT
     Indication: PRODUCT USED FOR UNKNOWN INDICATION
     Dosage: QD X 2 DAYS/WEEK
     Route: 058
  20. AZATHIOPRINE. [Concomitant]
     Active Substance: AZATHIOPRINE
     Indication: PRODUCT USED FOR UNKNOWN INDICATION
     Route: 065
  21. ADALIMUMAB [Suspect]
     Active Substance: ADALIMUMAB
     Indication: ANKYLOSING SPONDYLITIS
     Route: 058
  22. SULFASALAZINE. [Concomitant]
     Active Substance: SULFASALAZINE
     Route: 065
  23. LEFLUNOMIDE. [Concomitant]
     Active Substance: LEFLUNOMIDE
     Route: 065
  24. METHOTREXATE [Concomitant]
     Active Substance: METHOTREXATE
     Indication: PRODUCT USED FOR UNKNOWN INDICATION
     Route: 065
  25. METHOTREXATE [Concomitant]
     Active Substance: METHOTREXATE
     Route: 065

REACTIONS (15)
  - Decreased appetite [Fatal]
  - Multi-organ failure [Fatal]
  - Jaundice [Fatal]
  - Brain oedema [Fatal]
  - Nausea [Fatal]
  - Abdominal discomfort [Fatal]
  - Hepatic function abnormal [Fatal]
  - Hepatic encephalopathy [Fatal]
  - Coagulopathy [Fatal]
  - Dizziness [Fatal]
  - Bacteraemia [Fatal]
  - Hypotension [Fatal]
  - Hepatic enzyme increased [Fatal]
  - Hepatitis B [Fatal]
  - Chromaturia [Fatal]
